FAERS Safety Report 4409301-4 (Version None)
Quarter: 2004Q3

REPORT INFORMATION
  Report Type: 
  Country: None (occurrence: None)
  Receive Date: 20040722
  Receipt Date: 20040709
  Transmission Date: 20050211
  Serious: Yes (Other)
  Sender: FDA-Public Use
  Company Number: US-JNJFOC-20040401639

PATIENT
  Age: 70 Year
  Sex: Female
  Weight: 96.6162 kg

DRUGS (10)
  1. REMICADE [Suspect]
     Indication: RHEUMATOID ARTHRITIS
     Dosage: 4 MG/KG, 1 IN 1 DAY
  2. METHOTREXATE [Concomitant]
  3. PREDNISONE [Concomitant]
  4. METOPROLOL (METOPROLOL) [Concomitant]
  5. MAGNESIUM OXIDE (MAGNESIUM OXIDE) [Concomitant]
  6. WARFARIN (WARFARIN) [Concomitant]
  7. EVISTA [Concomitant]
  8. THYROID TAB [Concomitant]
  9. LASIX [Concomitant]
  10. ACEON [Concomitant]

REACTIONS (4)
  - ALANINE AMINOTRANSFERASE INCREASED [None]
  - ASPARTATE AMINOTRANSFERASE INCREASED [None]
  - LUNG SQUAMOUS CELL CARCINOMA RECURRENT [None]
  - METASTASES TO LIVER [None]
